FAERS Safety Report 9782540 (Version 2)
Quarter: 2014Q1

REPORT INFORMATION
  Report Type: Spontaneous
  Country: US (occurrence: US)
  Receive Date: 20131226
  Receipt Date: 20140109
  Transmission Date: 20141002
  Serious: Yes (Death)
  Sender: FDA-Public Use
  Company Number: US-009507513-1312USA010785

PATIENT
  Age: 62 Year
  Sex: Female

DRUGS (15)
  1. ZOCOR [Suspect]
     Dosage: 40 MG, DAILY
     Route: 048
  2. VALPROIC ACID [Interacting]
     Dosage: 10 MG, QD
     Route: 048
  3. LOFIBRA [Interacting]
     Indication: BLOOD CHOLESTEROL ABNORMAL
     Dosage: 200 MG, QD WITH THE LARGEST MEAL OF THE DAY
     Route: 048
  4. ZIPRASIDONE HYDROCHLORIDE [Interacting]
     Dosage: 80MG IN THE MORNING AND 160MG (80MG X 2) AT NIGHT
     Route: 048
  5. ALPRAZOLAM [Interacting]
     Indication: ANXIETY
     Dosage: HALF A TABLET OF 2MG, QAM
     Route: 048
  6. ALPRAZOLAM [Interacting]
     Dosage: 2 MG, QPM
     Route: 048
     Dates: end: 20130926
  7. PROPRANOLOL HYDROCHLORIDE [Interacting]
     Dosage: 160 MG, QD
     Route: 048
  8. DONEPEZIL HYDROCHLORIDE [Interacting]
     Dosage: 10 MG, QD
     Route: 048
  9. METFORMIN HYDROCHLORIDE [Interacting]
     Indication: GLUCOSE TOLERANCE IMPAIRED
     Dosage: 500 MG, QAM
     Route: 048
  10. METFORMIN HYDROCHLORIDE [Interacting]
     Dosage: 1000MG(500MG*2TABLETS), QPM (EVENING)
     Route: 048
     Dates: end: 20130926
  11. LEVETIRACETAM [Interacting]
     Dosage: 250 MG, BID
     Route: 048
  12. ANASTROZOLE [Interacting]
     Dosage: 1 MG, QD
  13. SALSALATE [Interacting]
     Indication: ARTHRALGIA
     Dosage: 750 MG, UNK
     Route: 048
  14. DIPHENHYDRAMINE HYDROCHLORIDE [Interacting]
     Dosage: UNK
  15. DIVALPROEX SODIUM [Interacting]
     Dosage: 750 MG, QD
     Route: 048

REACTIONS (5)
  - Accidental death [Fatal]
  - Toxicity to various agents [Fatal]
  - Drug interaction [Fatal]
  - Drug level changed [Fatal]
  - Intentional drug misuse [Fatal]
